FAERS Safety Report 6984642-5 (Version None)
Quarter: 2010Q3

REPORT INFORMATION
  Report Type: 
  Country: None (occurrence: None)
  Receive Date: 20100915
  Receipt Date: 20100914
  Transmission Date: 20110219
  Serious: Yes (Other)
  Sender: FDA-Public Use
  Company Number: US-PFIZER INC-2010082657

PATIENT
  Sex: Female
  Weight: 86.168 kg

DRUGS (4)
  1. DETROL LA [Suspect]
     Indication: HYPERTONIC BLADDER
     Dosage: 4 MG, 1X/DAY
     Route: 048
     Dates: start: 20100615
  2. PERCOCET [Concomitant]
     Dosage: [OXYCODONE 10 MG] / [ACETAMINOPHEN 325 MG], 2X/DAY
  3. SOMA [Concomitant]
     Dosage: 350 MG, 3X/DAY
  4. XANAX [Concomitant]
     Dosage: UNK

REACTIONS (3)
  - HEPATIC PAIN [None]
  - HEPATITIS [None]
  - MALAISE [None]
